FAERS Safety Report 6462540-3 (Version None)
Quarter: 2009Q4

REPORT INFORMATION
  Report Type: 
  Country: None (occurrence: None)
  Receive Date: 20091130
  Receipt Date: 20091123
  Transmission Date: 20100525
  Serious: Yes (Hospitalization)
  Sender: FDA-Public Use
  Company Number: US-ELI_LILLY_AND_COMPANY-US200911006293

PATIENT
  Age: 60 Year
  Sex: Female
  Weight: 86.168 kg

DRUGS (4)
  1. EFFIENT [Suspect]
     Indication: STENT PLACEMENT
     Dosage: 10 MG, DAILY (1/D)
     Route: 048
     Dates: start: 20091101
  2. PLAVIX [Concomitant]
     Dates: start: 20091101, end: 20091114
  3. CRESTOR [Concomitant]
  4. BACTRIM [Concomitant]
     Indication: URINARY TRACT INFECTION
     Dates: start: 20091101

REACTIONS (3)
  - DYSPHONIA [None]
  - RASH [None]
  - THROAT TIGHTNESS [None]
